FAERS Safety Report 7633173-8 (Version None)
Quarter: 2011Q3

REPORT INFORMATION
  Report Type: 
  Country: None (occurrence: None)
  Receive Date: 20110725
  Receipt Date: 20110721
  Transmission Date: 20111222
  Serious: Yes (Other)
  Sender: FDA-Public Use
  Company Number: US-PFIZER INC-2011166672

PATIENT
  Sex: Male
  Weight: 68.027 kg

DRUGS (3)
  1. ROBITUSSIN COUGH AND COLD LONG ACTING [Suspect]
     Dosage: UNK
     Route: 048
  2. SEROQUEL [Concomitant]
     Dosage: UNK
  3. TRILEPTAL [Concomitant]
     Dosage: UNK

REACTIONS (2)
  - MYDRIASIS [None]
  - ABNORMAL BEHAVIOUR [None]
